FAERS Safety Report 7276308-1 (Version None)
Quarter: 2011Q1

REPORT INFORMATION
  Report Type: 
  Country: None (occurrence: None)
  Receive Date: 20110204
  Receipt Date: 20110126
  Transmission Date: 20110831
  Serious: Yes (Hospitalization)
  Sender: FDA-Public Use
  Company Number: IE-MEDIMMUNE-MEDI-0012213

PATIENT
  Sex: Female
  Weight: 5.76 kg

DRUGS (6)
  1. LANSOPRAZOLE [Concomitant]
  2. SPIRONOLACTONE [Concomitant]
  3. FERROUS SULFATE TAB [Concomitant]
  4. SYNAGIS [Suspect]
     Indication: HEART DISEASE CONGENITAL
     Route: 030
     Dates: start: 20101020, end: 20101020
  5. FUROSEMIDE [Concomitant]
  6. KAPSOVIT [Concomitant]

REACTIONS (4)
  - RESPIRATORY SYNCYTIAL VIRUS TEST [None]
  - RESPIRATORY SYNCYTIAL VIRUS INFECTION [None]
  - H1N1 INFLUENZA [None]
  - INFLUENZA VIRUS TEST [None]
